FAERS Safety Report 16273372 (Version 1)
Quarter: 2019Q2

REPORT INFORMATION
  Report Type: Spontaneous
  Country: US (occurrence: US)
  Receive Date: 20190506
  Receipt Date: 20190506
  Transmission Date: 20190711
  Serious: No
  Sender: FDA-Public Use
  Company Number: US-GLAXOSMITHKLINE-US2019AMR072413

PATIENT
  Sex: Male

DRUGS (4)
  1. OMEPRAZOLE. [Concomitant]
     Active Substance: OMEPRAZOLE
     Indication: GASTROOESOPHAGEAL REFLUX DISEASE
     Dosage: UNK
     Dates: start: 2009
  2. TIMOPTIC [Concomitant]
     Active Substance: TIMOLOL MALEATE
     Dosage: UNK
     Dates: start: 2009
  3. BUPROPION HYDROCHLORIDE. [Suspect]
     Active Substance: BUPROPION HYDROCHLORIDE
     Indication: DEPRESSION
  4. TIMOPTIC [Concomitant]
     Active Substance: TIMOLOL MALEATE
     Indication: GLAUCOMA
     Dosage: UNK
     Dates: start: 2009

REACTIONS (11)
  - Malaise [Unknown]
  - Weight fluctuation [Unknown]
  - Anger [Unknown]
  - Hyperhidrosis [Unknown]
  - Mood swings [Unknown]
  - Oropharyngeal pain [Unknown]
  - Headache [Unknown]
  - Therapeutic product effect incomplete [Unknown]
  - Cough [Unknown]
  - Increased bronchial secretion [Unknown]
  - Sleep disorder [Unknown]
